FAERS Safety Report 12277652 (Version 2)
Quarter: 2016Q2

REPORT INFORMATION
  Report Type: Spontaneous
  Country: US (occurrence: US)
  Receive Date: 20160418
  Receipt Date: 20160429
  Transmission Date: 20160815
  Serious: Yes (Life-Threatening, Hospitalization, Other)
  Sender: FDA-Public Use
  Company Number: US-BAUSCH-BL-2016-006733

PATIENT
  Age: 69 Year
  Sex: Male

DRUGS (1)
  1. PROVENGE [Suspect]
     Active Substance: SIPULEUCEL-T
     Indication: PROSTATE CANCER
     Route: 042
     Dates: start: 20160307, end: 20160307

REACTIONS (3)
  - Thrombosis [Unknown]
  - Malaise [Unknown]
  - Prostate cancer metastatic [Unknown]

NARRATIVE: CASE EVENT DATE: 2016
